FAERS Safety Report 8840382 (Version 9)
Quarter: 2014Q2

REPORT INFORMATION
  Report Type: Spontaneous
  Country: US (occurrence: US)
  Receive Date: 20121015
  Receipt Date: 20140508
  Transmission Date: 20141212
  Serious: Yes (Hospitalization, Disabling, Other)
  Sender: FDA-Public Use
  Company Number: US-009507513-1210USA003189

PATIENT
  Sex: Female
  Weight: 63.49 kg

DRUGS (21)
  1. FOSAMAX [Suspect]
     Indication: OSTEOPOROSIS
     Dosage: 70 MG, QW
     Route: 048
  2. FOSAMAX [Suspect]
     Indication: OSTEOPENIA
     Dosage: 40 MG, QOD
     Route: 048
     Dates: start: 199702
  3. FOSAMAX [Suspect]
     Dosage: UNK
     Route: 048
     Dates: start: 20020529
  4. FOSAMAX [Suspect]
     Dosage: 20 MG, QD
     Route: 048
     Dates: start: 19970207
  5. FOSAMAX [Suspect]
     Dosage: 10 MG, QD
     Route: 048
     Dates: start: 199601
  6. ALENDRONATE SODIUM [Suspect]
     Dosage: 70 MG, UNK
     Route: 048
  7. PREMARIN [Concomitant]
     Indication: MENOPAUSE
     Dosage: 0.625 MG, TIW
  8. PREMARIN [Concomitant]
     Indication: OSTEOPOROSIS
  9. CALCIUM (UNSPECIFIED) [Concomitant]
     Indication: OSTEOPOROSIS
     Dosage: 1200-1500 MG, QD
  10. CALCIUM (UNSPECIFIED) [Concomitant]
     Indication: OSTEOPENIA
  11. RHINOCORT AQUA [Concomitant]
     Indication: RHINITIS ALLERGIC
  12. FORTEO [Concomitant]
     Indication: OSTEOPOROSIS
     Dosage: UNK
     Dates: start: 200403
  13. ALLEGRA [Concomitant]
     Indication: RHINITIS ALLERGIC
     Dosage: 180 MG, QD
     Dates: start: 20081217
  14. NASONEX [Concomitant]
     Indication: RHINITIS ALLERGIC
     Dosage: UNK
     Route: 045
     Dates: start: 20081217
  15. CHOLECALCIFEROL [Concomitant]
     Indication: OSTEOPOROSIS
     Dosage: 1000 IU, QD
  16. CHOLECALCIFEROL [Concomitant]
     Indication: OSTEOPENIA
  17. VITAMIN D (UNSPECIFIED) [Concomitant]
     Indication: OSTEOPOROSIS
  18. TUMS ULTRA [Concomitant]
     Indication: OSTEOPOROSIS
  19. ALLEGRA-D [Concomitant]
     Indication: RHINITIS ALLERGIC
  20. ETIDRONATE DISODIUM [Concomitant]
     Indication: OSTEOPOROSIS
     Dosage: 400 MG, 3 X PER MONTH
     Dates: start: 199306, end: 199601
  21. VITAMINS (UNSPECIFIED) [Concomitant]

REACTIONS (55)
  - Femur fracture [Not Recovered/Not Resolved]
  - Intramedullary rod insertion [Unknown]
  - Femur fracture [Unknown]
  - Rectal cancer [Unknown]
  - Deafness [Unknown]
  - Skin cancer [Unknown]
  - Chest pain [Unknown]
  - Hypothyroidism [Unknown]
  - Blood glucose increased [Unknown]
  - Cardiac murmur [Unknown]
  - Hypercholesterolaemia [Unknown]
  - Gastrooesophageal reflux disease [Unknown]
  - Rib deformity [Unknown]
  - Musculoskeletal disorder [Unknown]
  - Osteoarthritis [Unknown]
  - Inappropriate schedule of drug administration [Unknown]
  - Large intestine polyp [Unknown]
  - Bone disorder [Unknown]
  - Tonsillectomy [Unknown]
  - Hypertriglyceridaemia [Unknown]
  - Restless legs syndrome [Unknown]
  - Biopsy breast [Unknown]
  - Varicose vein [Unknown]
  - Carotid pulse decreased [Unknown]
  - Bursitis [Unknown]
  - Eustachian tube dysfunction [Unknown]
  - Blood pressure increased [Unknown]
  - Dermatitis allergic [Unknown]
  - Myoclonus [Recovering/Resolving]
  - Dyspnoea [Unknown]
  - Pulmonary congestion [Unknown]
  - Kyphosis [Unknown]
  - Bundle branch block left [Unknown]
  - Electrocardiogram ST-T change [Unknown]
  - Hair texture abnormal [Unknown]
  - Dry skin [Unknown]
  - Hiatus hernia [Unknown]
  - External nose lesion excision [Unknown]
  - Spinal fracture [Unknown]
  - Nodule [Unknown]
  - Nasal mucosal disorder [Unknown]
  - Acne [Unknown]
  - Acne [Unknown]
  - Carcinoembryonic antigen increased [Unknown]
  - Cataract operation [Unknown]
  - Inappropriate schedule of drug administration [Unknown]
  - Cystocele [Unknown]
  - Biopsy breast [Unknown]
  - Atrophic vulvovaginitis [Unknown]
  - Pain in extremity [Unknown]
  - Rash erythematous [Unknown]
  - Flatulence [Recovering/Resolving]
  - Alopecia [Unknown]
  - Drug ineffective [Unknown]
  - Drug ineffective [Unknown]
